FAERS Safety Report 7531527-1 (Version None)
Quarter: 2011Q2

REPORT INFORMATION
  Report Type: 
  Country: None (occurrence: None)
  Receive Date: 20110601
  Receipt Date: 20110519
  Transmission Date: 20111010
  Serious: Yes (Hospitalization, Other)
  Sender: FDA-Public Use
  Company Number: 2010001931

PATIENT
  Age: 74 Year
  Sex: Female

DRUGS (9)
  1. HEPATIL (ORNITHINE ASPARTATE) [Concomitant]
  2. HEPARIN [Suspect]
     Indication: PHLEBITIS
     Dosage: TOPICAL
     Route: 061
     Dates: start: 20090324
  3. BISOPROLOL FUMARATE [Concomitant]
  4. ASPIRIN [Concomitant]
  5. HEPAREGEN (TIMONACIC) [Concomitant]
  6. CLODRONIC ACID (CLODRONIC ACID) [Concomitant]
  7. TARCEVA [Suspect]
     Indication: NON-SMALL CELL LUNG CANCER
     Dosage: 150 MG, UID/QD, ORAL
     Route: 048
     Dates: start: 20090129
  8. BUTAPIRAZOL (PHENYLBUTAZONE) [Suspect]
     Indication: PHLEBITIS
     Dosage: TOPICAL
     Route: 061
     Dates: start: 20090324
  9. LORINDEN (FLUMETASONE PIVALATE) [Suspect]
     Indication: SKIN DISORDER
     Dosage: TOPICAL
     Route: 061
     Dates: start: 20090201

REACTIONS (12)
  - DIARRHOEA [None]
  - ALANINE AMINOTRANSFERASE INCREASED [None]
  - PNEUMONIA [None]
  - MYOCARDIAL INFARCTION [None]
  - ASPARTATE AMINOTRANSFERASE INCREASED [None]
  - PHLEBITIS [None]
  - SKIN INFECTION [None]
  - BLOOD ALKALINE PHOSPHATASE INCREASED [None]
  - DRESSLER'S SYNDROME [None]
  - INFLAMMATION [None]
  - RASH [None]
  - BLOOD BILIRUBIN INCREASED [None]
